FAERS Safety Report 8281970-0 (Version None)
Quarter: 2012Q2

REPORT INFORMATION
  Report Type: 
  Country: None (occurrence: None)
  Receive Date: 20120413
  Receipt Date: 20120409
  Transmission Date: 20120825
  Serious: Yes (Death)
  Sender: FDA-Public Use
  Company Number: JP-BAYER-2011-111773

PATIENT
  Age: 57 Year
  Sex: Male
  Weight: 61 kg

DRUGS (8)
  1. PANCREAZE [Concomitant]
     Dosage: DAILY DOSE 1.2 G
     Route: 048
  2. NEOPHAGEN-1 [Concomitant]
     Dosage: DAILY DOSE 3 DF
     Route: 048
  3. CEPHARANTHINE [Concomitant]
     Dosage: DAILY DOSE 3 MG
     Route: 048
  4. CANDESARTAN CILEXETIL [Concomitant]
     Dosage: DAILY DOSE 4 MG
     Route: 048
  5. MYONAL [Concomitant]
     Dosage: DAILY DOSE 150 MG
     Route: 048
  6. NEXAVAR [Suspect]
     Indication: HEPATIC NEOPLASM MALIGNANT
     Dosage: DAILY DOSE 800 MG
     Route: 048
     Dates: start: 20110629, end: 20111115
  7. ZOLPIDEM [Concomitant]
     Dosage: DAILY DOSE 10 MG
     Route: 048
  8. URSO 250 [Concomitant]
     Dosage: DAILY DOSE 600 MG
     Route: 048

REACTIONS (1)
  - INTERSTITIAL LUNG DISEASE [None]
